FAERS Safety Report 13071374 (Version 2)
Quarter: 2018Q2

REPORT INFORMATION
  Report Type: Spontaneous
  Country: US (occurrence: US)
  Receive Date: 20161229
  Receipt Date: 20180411
  Transmission Date: 20180711
  Serious: No
  Sender: FDA-Public Use
  Company Number: US-009507513-1612USA013566

PATIENT
  Age: 0 Day
  Weight: 2.43 kg

DRUGS (4)
  1. RITONAVIR. [Suspect]
     Active Substance: RITONAVIR
     Dosage: UNK
     Route: 064
  2. ISENTRESS [Suspect]
     Active Substance: RALTEGRAVIR POTASSIUM
     Dosage: UNK
     Route: 064
  3. ATAZANAVIR. [Suspect]
     Active Substance: ATAZANAVIR SULFATE
     Dosage: UNK
     Route: 064
  4. EMTRICITABINE (+) TENOFOVIR DISOPROXIL FUMARATE [Suspect]
     Active Substance: EMTRICITABINE\TENOFOVIR DISOPROXIL
     Dosage: UNK
     Route: 064

REACTIONS (2)
  - Foetal exposure during pregnancy [Recovered/Resolved]
  - Low birth weight baby [Unknown]

NARRATIVE: CASE EVENT DATE: 20151223
